FAERS Safety Report 9303084 (Version 1)
Quarter: 2013Q2

REPORT INFORMATION
  Report Type: Spontaneous
  Country: GB (occurrence: GB)
  Receive Date: 20130522
  Receipt Date: 20130522
  Transmission Date: 20140414
  Serious: Yes (Other)
  Sender: FDA-Public Use
  Company Number: GB-B.I. PHARMACEUTICALS,INC./RIDGEFIELD-2013-UK-01111UK

PATIENT
  Age: 70 Year
  Sex: Female
  Weight: 99.9 kg

DRUGS (7)
  1. TRAJENTA [Suspect]
     Indication: TYPE 2 DIABETES MELLITUS
     Route: 048
     Dates: start: 20120621, end: 20130409
  2. AMLODIPINE [Concomitant]
  3. GLICLAZIDE [Concomitant]
  4. LISINOPRIL [Concomitant]
  5. PARACETAMOL [Concomitant]
  6. SIMVASTATIN [Concomitant]
  7. ZANTAC [Concomitant]

REACTIONS (1)
  - Liver function test abnormal [Recovered/Resolved]
